FAERS Safety Report 9665201 (Version 2)
Quarter: 2013Q4

REPORT INFORMATION
  Report Type: Spontaneous
  Country: US (occurrence: US)
  Receive Date: 20131101
  Receipt Date: 20131101
  Transmission Date: 20140711
  Serious: Yes (Other)
  Sender: FDA-Public Use
  Company Number: US-CELGENEUS-163-21880-13082739

PATIENT
  Age: 84 Year
  Sex: Female

DRUGS (5)
  1. REVLIMID [Suspect]
     Indication: PLASMA CELL MYELOMA
     Dosage: 25 MILLIGRAM
     Route: 048
     Dates: start: 201001, end: 2010
  2. REVLIMID [Suspect]
     Dosage: 15 MILLIGRAM
     Route: 048
     Dates: start: 201003, end: 201003
  3. REVLIMID [Suspect]
     Dosage: 5-10MG-25MG
     Route: 048
     Dates: start: 201003, end: 2011
  4. REVLIMID [Suspect]
     Dosage: 10 MILLIGRAM
     Route: 048
     Dates: start: 201102, end: 2013
  5. TARCEVA [Concomitant]
     Indication: LUNG NEOPLASM MALIGNANT
     Dosage: 150 MILLIGRAM
     Route: 065

REACTIONS (2)
  - Lung adenocarcinoma [Unknown]
  - Full blood count decreased [Unknown]
